FAERS Safety Report 14758111 (Version 1)
Quarter: 2018Q2

REPORT INFORMATION
  Report Type: Spontaneous
  Country: PT (occurrence: PT)
  Receive Date: 20180413
  Receipt Date: 20180413
  Transmission Date: 20180711
  Serious: Yes (Hospitalization, Other)
  Sender: FDA-Public Use
  Company Number: PT-LINDE-PT-LHC-2018087

PATIENT
  Age: 75 Year
  Sex: Female

DRUGS (2)
  1. OXYGEN (GENERIC) [Concomitant]
     Active Substance: OXYGEN
     Indication: RESPIRATORY FAILURE
  2. OXYGEN (GENERIC) [Suspect]
     Active Substance: OXYGEN
     Indication: RESPIRATORY FAILURE

REACTIONS (1)
  - Pneumomediastinum [Recovering/Resolving]
